FAERS Safety Report 7067757-5 (Version None)
Quarter: 2010Q4

REPORT INFORMATION
  Report Type: 
  Country: None (occurrence: None)
  Receive Date: 20101028
  Receipt Date: 20091014
  Transmission Date: 20110411
  Serious: No
  Sender: FDA-Public Use
  Company Number: A0810761A

PATIENT
  Age: 78 Year
  Sex: Female

DRUGS (4)
  1. SEREVENT [Suspect]
     Indication: EMPHYSEMA
     Dosage: 1PUFF TWICE PER DAY
     Route: 055
     Dates: start: 20090921
  2. OXYGEN [Concomitant]
  3. SPIRIVA [Concomitant]
  4. QVAR 40 [Concomitant]

REACTIONS (2)
  - ASTHENIA [None]
  - COUGH [None]
